FAERS Safety Report 24064122 (Version 2)
Quarter: 2024Q3

REPORT INFORMATION
  Report Type: Spontaneous
  Country: US (occurrence: US)
  Receive Date: 20240709
  Receipt Date: 20240709
  Transmission Date: 20241016
  Serious: Yes (Other)
  Sender: GLAXOSMITHKLINE
  Company Number: US-GLAXOSMITHKLINE-US2024078561

PATIENT
  Age: 73 Year
  Sex: Female

DRUGS (1)
  1. TRELEGY ELLIPTA [Suspect]
     Active Substance: FLUTICASONE FUROATE\UMECLIDINIUM BROMIDE\VILANTEROL TRIFENATATE
     Indication: Dyspnoea
     Dosage: 1 PUFF(S), QD, 100/62.5/25 MCG
     Dates: start: 202402

REACTIONS (6)
  - Hypersensitivity pneumonitis [Unknown]
  - Pneumonia [Unknown]
  - Sciatica [Unknown]
  - Arthritis [Unknown]
  - Chest pain [Unknown]
  - Somnolence [Unknown]

NARRATIVE: CASE EVENT DATE: 20240624
